FAERS Safety Report 4385921-0 (Version None)
Quarter: 2004Q2

REPORT INFORMATION
  Report Type: 
  Country: None (occurrence: None)
  Receive Date: 20040622
  Receipt Date: 20040609
  Transmission Date: 20050107
  Serious: Yes (Hospitalization, Other)
  Sender: FDA-Public Use
  Company Number: 2004039112

PATIENT
  Sex: Female
  Weight: 53.978 kg

DRUGS (7)
  1. NEURONTIN [Suspect]
     Indication: NEUROPATHY
     Dosage: 600 MG (200 MG, 3 IN 1D)
  2. CELECOXIB (CELECOXIB) [Concomitant]
  3. WARFARIN SODIUN (WARFARIN SODIUM) [Concomitant]
  4. RABEPRAZOLE SODIUM(RABEPRAZOLE SODIUM) [Concomitant]
  5. ULTRACET [Concomitant]
  6. ZOLPIDEM TARTRATE [Concomitant]
  7. CONJUGATED ESTROGENS [Concomitant]

REACTIONS (11)
  - CARPAL TUNNEL SYNDROME [None]
  - DIZZINESS [None]
  - DRUG LEVEL FLUCTUATING [None]
  - EYE INJURY [None]
  - FALL [None]
  - FATIGUE [None]
  - FEELING ABNORMAL [None]
  - GAIT DISTURBANCE [None]
  - HEAD INJURY [None]
  - MENTAL DISORDER [None]
  - SOMNOLENCE [None]
